FAERS Safety Report 9015827 (Version 4)
Quarter: 2013Q1

REPORT INFORMATION
  Report Type: Spontaneous
  Country: IT (occurrence: IT)
  Receive Date: 20130116
  Receipt Date: 20130129
  Transmission Date: 20140127
  Serious: Yes (Hospitalization)
  Sender: FDA-Public Use
  Company Number: IT-PFIZER INC-2013010064

PATIENT
  Age: 73 Year
  Sex: Male

DRUGS (17)
  1. CARDIOASPIRIN [Suspect]
     Indication: ANTICOAGULANT THERAPY
     Dosage: 100 MG, DAILY
     Route: 048
     Dates: start: 20121226, end: 20121229
  2. BRONCOVALEAS [Suspect]
     Indication: PNEUMONIA
     Dosage: 5 DROPS (0.5 %), DAILY
     Route: 055
     Dates: start: 20130101, end: 20130107
  3. BRONCOVALEAS [Suspect]
     Indication: PNEUMONITIS
  4. CLENIL [Suspect]
     Indication: PNEUMONITIS
     Dosage: 100 MCG, DAILY
     Route: 045
     Dates: start: 20121226, end: 20130101
  5. CLENIL [Suspect]
     Indication: PNEUMONIA
  6. CLEXANE [Concomitant]
     Dosage: UNK
     Dates: start: 20130102, end: 20130104
  7. LANSOPRAZOLE [Concomitant]
     Indication: GASTROOESOPHAGEAL REFLUX DISEASE
     Dosage: 30 MG, DAILY
     Route: 048
     Dates: start: 20121226, end: 20130108
  8. IDROPLURIVIT [Concomitant]
     Dosage: UNK
     Dates: start: 20130102, end: 20130104
  9. CARVEDILOL [Suspect]
     Indication: CARDIOMEGALY
     Dosage: 18 MG, DAILY
     Route: 048
     Dates: start: 20121226, end: 20130108
  10. CARVEDILOL [Suspect]
     Indication: CARDIAC DISORDER
  11. TRIATEC [Suspect]
     Indication: ESSENTIAL HYPERTENSION
     Dosage: 2 MG, DAILY
     Route: 048
     Dates: start: 20121226, end: 20130108
  12. METFORMIN HCL [Suspect]
     Indication: TYPE 2 DIABETES MELLITUS
     Dosage: 1000 MG, DAILY
     Route: 048
     Dates: start: 20121226, end: 20121229
  13. METFORMIN HCL [Suspect]
     Indication: TYPE 2 DIABETES MELLITUS
  14. LEVOFLOXACIN [Suspect]
     Indication: PNEUMONITIS
     Dosage: 500 MG, DAILY
     Route: 048
     Dates: start: 20121226, end: 20130104
  15. LEVOFLOXACIN [Suspect]
     Indication: PNEUMONIA
  16. LASIX [Suspect]
     Indication: POLYURIA
     Dosage: 25 MG, DAILY
     Route: 048
     Dates: start: 20121226, end: 20130108
  17. NITRO-DUR [Suspect]
     Indication: ANGINA UNSTABLE
     Dosage: 10 MG, DAILY
     Route: 062
     Dates: start: 20121226, end: 20130108

REACTIONS (1)
  - Tendonitis [Unknown]
